FAERS Safety Report 23484208 (Version 1)
Quarter: 2024Q1

REPORT INFORMATION
  Report Type: Other
  Country: RO (occurrence: None)
  Receive Date: 20240206
  Receipt Date: 20240206
  Transmission Date: 20240410
  Serious: Yes (Other)
  Sender: FDA-Public Use
  Company Number: RO-ROCHE-3502985

PATIENT

DRUGS (10)
  1. BEVACIZUMAB [Suspect]
     Active Substance: BEVACIZUMAB
     Indication: Colorectal cancer metastatic
     Route: 042
  2. BEVACIZUMAB [Suspect]
     Active Substance: BEVACIZUMAB
     Route: 042
  3. OXALIPLATIN [Suspect]
     Active Substance: OXALIPLATIN
     Indication: Colorectal cancer metastatic
     Route: 042
  4. OXALIPLATIN [Suspect]
     Active Substance: OXALIPLATIN
     Route: 042
  5. FLUOROURACIL [Suspect]
     Active Substance: FLUOROURACIL
     Indication: Colorectal cancer metastatic
     Dosage: 400 MG/M2 IV BOLUS AND 2400 MG/M2 CONTINUOUS IV INFUSION FOR 46 H
     Route: 040
  6. FLUOROURACIL [Suspect]
     Active Substance: FLUOROURACIL
     Dosage: 400 MG/M2 IV BOLUS AND 2400 MG/M2 CONTINUOUS IV INFUSION FOR 46 H
     Route: 042
  7. LEUCOVORIN [Suspect]
     Active Substance: LEUCOVORIN\LEUCOVORIN CALCIUM
     Indication: Colorectal cancer metastatic
     Route: 042
  8. IRINOTECAN [Suspect]
     Active Substance: IRINOTECAN
     Indication: Colorectal cancer metastatic
     Route: 042
  9. IRINOTECAN [Suspect]
     Active Substance: IRINOTECAN
     Route: 042
  10. CAPECITABINE [Suspect]
     Active Substance: CAPECITABINE
     Indication: Colorectal cancer metastatic
     Dosage: 1000 MG/M2 TWICE DAILY ON DAYS 1-14, EVERY 3 WEEK
     Route: 048

REACTIONS (6)
  - Anaemia [Unknown]
  - Neutropenia [Unknown]
  - Neurotoxicity [Unknown]
  - Proteinuria [Unknown]
  - Hepatotoxicity [Unknown]
  - Thrombocytopenia [Unknown]
